FAERS Safety Report 13583010 (Version 2)
Quarter: 2017Q3

REPORT INFORMATION
  Report Type: Report from Study
  Country: US (occurrence: US)
  Receive Date: 20170525
  Receipt Date: 20170717
  Transmission Date: 20171127
  Serious: Yes (Hospitalization)
  Sender: FDA-Public Use
  Company Number: US-ACTELION-A-NJ2016-147033

PATIENT
  Age: 66 Year
  Sex: Female
  Weight: 64.4 kg

DRUGS (2)
  1. ADCIRCA [Concomitant]
     Active Substance: TADALAFIL
  2. OPSUMIT [Suspect]
     Active Substance: MACITENTAN
     Indication: PULMONARY HYPERTENSION
     Dosage: 10 MG, QD
     Route: 048
     Dates: start: 20161121

REACTIONS (22)
  - Nasal congestion [Unknown]
  - Hypotension [Unknown]
  - Abdominal distension [Unknown]
  - Vulval haemorrhage [Unknown]
  - Pain [Unknown]
  - Fatigue [Unknown]
  - Oropharyngeal pain [Unknown]
  - Ear infection [Unknown]
  - Constipation [Unknown]
  - Abdominal discomfort [Unknown]
  - Cough [Unknown]
  - Nausea [Unknown]
  - Eye pruritus [Unknown]
  - Dyspnoea [Unknown]
  - Vulval disorder [Unknown]
  - Influenza like illness [Unknown]
  - Flatulence [Unknown]
  - Rhinorrhoea [Unknown]
  - Anxiety [Unknown]
  - Sinus disorder [Unknown]
  - Diarrhoea [Unknown]
  - Vomiting [Unknown]
